FAERS Safety Report 5290258-1 (Version None)
Quarter: 2007Q2

REPORT INFORMATION
  Report Type: 
  Country: None (occurrence: None)
  Receive Date: 20070402
  Receipt Date: 20070323
  Transmission Date: 20071010
  Serious: Yes (Hospitalization)
  Sender: FDA-Public Use
  Company Number: 238844

PATIENT
  Age: 62 Year
  Sex: Male
  Weight: 118.4 kg

DRUGS (9)
  1. RAPTIVA [Suspect]
     Indication: PSORIASIS
     Dosage: 1.2 ML, 1/WEEK, SUBCUTANEOUS
     Route: 058
  2. SODIUM CITRATE [Concomitant]
  3. METFORMIN HCL [Concomitant]
  4. GLIPIZIDE [Concomitant]
  5. AVANDIA [Concomitant]
  6. ZOCOR [Concomitant]
  7. GEMFIBROZIL [Concomitant]
  8. OMEPRAZOLE [Concomitant]
  9. TERAZOSIN HCL [Concomitant]

REACTIONS (1)
  - NEPHROLITHIASIS [None]
